FAERS Safety Report 11777004 (Version 4)
Quarter: 2016Q1

REPORT INFORMATION
  Report Type: Report from Study
  Country: US (occurrence: US)
  Receive Date: 20151125
  Receipt Date: 20160321
  Transmission Date: 20160525
  Serious: No
  Sender: FDA-Public Use
  Company Number: US-ACTELION-A-US2015-127354

PATIENT
  Age: 75 Year
  Sex: Female

DRUGS (1)
  1. MACITENTAN [Suspect]
     Active Substance: MACITENTAN
     Indication: PULMONARY ARTERIAL HYPERTENSION
     Dosage: 10 MG, QD
     Route: 048
     Dates: start: 20151026, end: 20151109

REACTIONS (7)
  - Ocular icterus [Recovered/Resolved]
  - Fatigue [Unknown]
  - No therapeutic response [Unknown]
  - Chromaturia [Recovered/Resolved]
  - Asthenia [Unknown]
  - Jaundice [Recovered/Resolved]
  - Dizziness [Unknown]
